FAERS Safety Report 5568856-7 (Version None)
Quarter: 2007Q4

REPORT INFORMATION
  Report Type: 
  Country: None (occurrence: None)
  Receive Date: 20071220
  Receipt Date: 20070213
  Transmission Date: 20080405
  Serious: No
  Sender: FDA-Public Use
  Company Number: A0639514A

PATIENT
  Age: 76 Year
  Sex: Female

DRUGS (4)
  1. AVODART [Suspect]
     Indication: DRUG USE FOR UNKNOWN INDICATION
     Dosage: 1CAPL SINGLE DOSE
     Route: 048
     Dates: start: 20070213, end: 20070213
  2. LIPITOR [Concomitant]
  3. VERAPAMIL [Concomitant]
  4. OMEPRAZOLE [Concomitant]

REACTIONS (1)
  - ACCIDENTAL EXPOSURE [None]
